FAERS Safety Report 21919195 (Version 1)
Quarter: 2023Q1

REPORT INFORMATION
  Report Type: Spontaneous
  Country: US (occurrence: None)
  Receive Date: 20230126
  Receipt Date: 20230126
  Transmission Date: 20230418
  Serious: Yes (Hospitalization)
  Sender: FDA-Public Use
  Company Number: None

PATIENT
  Age: 76 Year
  Sex: Female
  Weight: 78.79 kg

DRUGS (13)
  1. TEMOZOLOMIDE [Suspect]
     Active Substance: TEMOZOLOMIDE
     Indication: Brain neoplasm malignant
     Dosage: FREQUENCY : DAILY;?
     Route: 048
     Dates: end: 20230120
  2. ATORVASTATIN [Concomitant]
  3. COLACE [Concomitant]
  4. DEPAKENE [Concomitant]
  5. DEXAMETHASONE [Concomitant]
  6. ELIQUIS [Concomitant]
  7. HYDROCORTISONE [Concomitant]
  8. KEPPRA [Concomitant]
  9. LACOSAMIDE [Concomitant]
  10. METOPROLOL [Concomitant]
     Active Substance: METOPROLOL
  11. SIMVASTATIN [Concomitant]
  12. SODIUM CHLORIDE [Concomitant]
  13. SULFAMETHOXAZOLE-TRIMETHOPRIM [Concomitant]

REACTIONS (3)
  - Full blood count decreased [None]
  - Platelet count decreased [None]
  - Therapy interrupted [None]
